FAERS Safety Report 18683263 (Version 3)
Quarter: 2021Q4

REPORT INFORMATION
  Report Type: Report from Study
  Country: FR (occurrence: FR)
  Receive Date: 20201230
  Receipt Date: 20211209
  Transmission Date: 20220303
  Serious: Yes (Other)
  Sender: FDA-Public Use
  Company Number: FR-TAKEDA-FR201850758

PATIENT
  Age: 40 Year
  Sex: Female

DRUGS (16)
  1. TEDUGLUTIDE [Suspect]
     Active Substance: TEDUGLUTIDE
     Indication: Short-bowel syndrome
     Dosage: UNK
     Route: 065
     Dates: start: 20170831
  2. TEDUGLUTIDE [Suspect]
     Active Substance: TEDUGLUTIDE
     Indication: Short-bowel syndrome
     Dosage: UNK
     Route: 065
     Dates: start: 20170831
  3. TEDUGLUTIDE [Suspect]
     Active Substance: TEDUGLUTIDE
     Indication: Short-bowel syndrome
     Dosage: UNK
     Route: 065
     Dates: start: 20170831
  4. TEDUGLUTIDE [Suspect]
     Active Substance: TEDUGLUTIDE
     Indication: Short-bowel syndrome
     Dosage: UNK
     Route: 065
     Dates: start: 20170831
  5. TEDUGLUTIDE [Suspect]
     Active Substance: TEDUGLUTIDE
     Dosage: 0.050 MILLIGRAM/KILOGRAM, Q7WEEKS
     Route: 065
     Dates: start: 20170831, end: 20180423
  6. TEDUGLUTIDE [Suspect]
     Active Substance: TEDUGLUTIDE
     Dosage: 0.050 MILLIGRAM/KILOGRAM, Q7WEEKS
     Route: 065
     Dates: start: 20170831, end: 20180423
  7. TEDUGLUTIDE [Suspect]
     Active Substance: TEDUGLUTIDE
     Dosage: 0.050 MILLIGRAM/KILOGRAM, Q7WEEKS
     Route: 065
     Dates: start: 20170831, end: 20180423
  8. TEDUGLUTIDE [Suspect]
     Active Substance: TEDUGLUTIDE
     Dosage: 0.050 MILLIGRAM/KILOGRAM, Q7WEEKS
     Route: 065
     Dates: start: 20170831, end: 20180423
  9. TEDUGLUTIDE [Suspect]
     Active Substance: TEDUGLUTIDE
     Dosage: 0.05 MILLIGRAM/KILOGRAM
     Route: 065
     Dates: start: 20180508
  10. TEDUGLUTIDE [Suspect]
     Active Substance: TEDUGLUTIDE
     Dosage: 0.05 MILLIGRAM/KILOGRAM
     Route: 065
     Dates: start: 20180508
  11. TEDUGLUTIDE [Suspect]
     Active Substance: TEDUGLUTIDE
     Dosage: 0.05 MILLIGRAM/KILOGRAM
     Route: 065
     Dates: start: 20180508
  12. TEDUGLUTIDE [Suspect]
     Active Substance: TEDUGLUTIDE
     Dosage: 0.05 MILLIGRAM/KILOGRAM
     Route: 065
     Dates: start: 20180508
  13. CLOXACILLIN [Concomitant]
     Active Substance: CLOXACILLIN
     Indication: Device related infection
     Dosage: 1.80 GRAM, QID
     Route: 042
     Dates: start: 20210704, end: 20210720
  14. MUPIROCIN [Concomitant]
     Active Substance: MUPIROCIN
     Indication: Skin wound
     Dosage: UNK
     Route: 061
     Dates: start: 20210424, end: 20210508
  15. FUSIDIC ACID [Concomitant]
     Active Substance: FUSIDIC ACID
     Indication: Skin wound
     Dosage: UNK
     Route: 061
     Dates: start: 20210308, end: 20210322
  16. PRISTINAMYCIN [Concomitant]
     Active Substance: PRISTINAMYCIN
     Indication: Skin infection
     Dosage: UNK
     Route: 048
     Dates: start: 20201203, end: 20210113

REACTIONS (1)
  - Device related infection [Recovered/Resolved]

NARRATIVE: CASE EVENT DATE: 20180614
